FAERS Safety Report 6450857-8 (Version None)
Quarter: 2009Q4

REPORT INFORMATION
  Report Type: 
  Country: None (occurrence: None)
  Receive Date: 20091123
  Receipt Date: 20091111
  Transmission Date: 20100525
  Serious: Yes (Other)
  Sender: FDA-Public Use
  Company Number: MX-GILEAD-2009-0024273

PATIENT
  Age: 40 Year
  Sex: Male

DRUGS (2)
  1. TRUVADA [Suspect]
     Indication: PROPHYLAXIS AGAINST HIV INFECTION
     Route: 048
     Dates: start: 20090825, end: 20090923
  2. KALETRA [Concomitant]
     Indication: PROPHYLAXIS AGAINST HIV INFECTION
     Route: 048
     Dates: start: 20090825, end: 20090923

REACTIONS (7)
  - CONFUSIONAL STATE [None]
  - GASTRODUODENITIS [None]
  - GENITAL HERPES [None]
  - HEADACHE [None]
  - INFLAMMATION [None]
  - SYNCOPE [None]
  - TACHYCARDIA [None]
